FAERS Safety Report 5781619-2 (Version None)
Quarter: 2008Q2

REPORT INFORMATION
  Report Type: 
  Country: None (occurrence: None)
  Receive Date: 20080623
  Receipt Date: 20080612
  Transmission Date: 20081010
  Serious: Yes (Disabling)
  Sender: FDA-Public Use
  Company Number: GB-JNJFOC-20080602865

PATIENT
  Age: 61 Year
  Sex: Male

DRUGS (6)
  1. TARAVID [Suspect]
     Indication: PROSTATITIS
     Route: 048
  2. FLECAINIDE ACETATE [Concomitant]
     Indication: CARDIAC DISORDER
     Route: 048
  3. IRBESARTAN [Concomitant]
     Indication: CARDIAC DISORDER
     Route: 048
  4. IRBESARTAN [Concomitant]
     Indication: HYPERTENSION
     Route: 048
  5. ASPIRIN [Concomitant]
     Indication: CARDIAC DISORDER
     Route: 048
  6. AMIODARONE HCL [Concomitant]
     Indication: CARDIAC DISORDER
     Route: 048

REACTIONS (2)
  - ARTHRALGIA [None]
  - LETHARGY [None]
